FAERS Safety Report 4285900-8 (Version None)
Quarter: 2004Q1

REPORT INFORMATION
  Report Type: 
  Country: None (occurrence: None)
  Receive Date: 20040205
  Receipt Date: 20030622
  Transmission Date: 20041129
  Serious: Yes (Other)
  Sender: FDA-Public Use
  Company Number: US-GLAXOSMITHKLINE-A0415402A

PATIENT
  Sex: Female

DRUGS (1)
  1. PAXIL [Suspect]
     Route: 065

REACTIONS (7)
  - ANXIETY [None]
  - DEPENDENCE [None]
  - DRUG DEPENDENCE [None]
  - FEELING ABNORMAL [None]
  - INSOMNIA [None]
  - TENSION [None]
  - WEIGHT INCREASED [None]
